FAERS Safety Report 7801949-X (Version None)
Quarter: 2011Q4

REPORT INFORMATION
  Report Type: 
  Country: None (occurrence: None)
  Receive Date: 20111007
  Receipt Date: 20111007
  Transmission Date: 20120403
  Serious: Yes (Hospitalization)
  Sender: FDA-Public Use
  Company Number: None

PATIENT
  Age: 57 Year
  Sex: Female
  Weight: 90.264 kg

DRUGS (3)
  1. SERTRALINE HYDROCHLORIDE [Concomitant]
     Route: 048
  2. AVELOX [Suspect]
     Indication: URINARY TRACT INFECTION
     Dosage: 400MG
     Route: 048
     Dates: start: 20111003, end: 20111003
  3. ACETAMINOPHEN [Concomitant]
     Route: 048

REACTIONS (1)
  - ANAPHYLACTIC REACTION [None]
